FAERS Safety Report 7183706-3 (Version None)
Quarter: 2010Q4

REPORT INFORMATION
  Report Type: 
  Country: None (occurrence: None)
  Receive Date: 20101220
  Receipt Date: 20101220
  Transmission Date: 20110411
  Serious: Yes (Hospitalization)
  Sender: FDA-Public Use
  Company Number: None

PATIENT
  Age: 79 Year
  Sex: Female
  Weight: 79 kg

DRUGS (20)
  1. COUMADIN [Suspect]
     Indication: CORONARY ARTERY DISEASE
     Dosage: 5MG DAILY PO CHRONIC
     Route: 048
  2. ASA [Suspect]
     Indication: CORONARY ARTERY DISEASE
     Dosage: 81 MG DAILY PO CHRONIC
     Route: 048
  3. FLUOCINOLONE ACETONIDE [Concomitant]
  4. LOVAZA [Concomitant]
  5. LUCENTIS [Concomitant]
  6. PROBIOTIC [Concomitant]
  7. CHONDROITIN GLUCOSAMINE [Concomitant]
  8. M.V.I. [Concomitant]
  9. CHOLECALCIFEROL [Concomitant]
  10. COENZYME Q10 [Concomitant]
  11. CEREFOLIN MVI [Concomitant]
  12. GRAPE SEED OIL [Concomitant]
  13. AVODART [Concomitant]
  14. ASCORBIC ACID [Concomitant]
  15. ZOCOR [Concomitant]
  16. METOPROLOL XL [Concomitant]
  17. RAMIPRIL [Concomitant]
  18. CELEXA [Concomitant]
  19. GALANTAMINE HYDROBROMIDE [Concomitant]
  20. PRESERVION [Concomitant]

REACTIONS (4)
  - HAEMATOMA [None]
  - INTERNATIONAL NORMALISED RATIO ABNORMAL [None]
  - PAIN [None]
  - RETROPERITONEAL HAEMORRHAGE [None]
